FAERS Safety Report 4512439-4 (Version None)
Quarter: 2004Q4

REPORT INFORMATION
  Report Type: 
  Country: None (occurrence: None)
  Receive Date: 20041124
  Receipt Date: 20041104
  Transmission Date: 20050328
  Serious: Yes (Disabling)
  Sender: FDA-Public Use
  Company Number: USA041183295

PATIENT
  Sex: Female

DRUGS (2)
  1. HUMULIN N [Suspect]
  2. INUSLIN-INSULIN-ANIMAL (UNKNOWN FORMULATION) (INSUL [Suspect]
     Dates: start: 19540101

REACTIONS (1)
  - DIABETIC BLINDNESS [None]
